FAERS Safety Report 9355217 (Version 1)
Quarter: 2013Q2

REPORT INFORMATION
  Report Type: Report from Study
  Country: AR (occurrence: AR)
  Receive Date: 20130619
  Receipt Date: 20130619
  Transmission Date: 20140414
  Serious: Yes (Death)
  Sender: FDA-Public Use
  Company Number: PHHY2013AR061830

PATIENT
  Age: 77 Year
  Sex: Male

DRUGS (1)
  1. EXELON PATCH [Suspect]
     Indication: DEMENTIA ALZHEIMER^S TYPE
     Dosage: 4.6 MG, DAILY
     Route: 062

REACTIONS (1)
  - Myocardial infarction [Fatal]
